FAERS Safety Report 11261238 (Version 2)
Quarter: 2015Q4

REPORT INFORMATION
  Report Type: Spontaneous
  Country: GB (occurrence: GB)
  Receive Date: 20150710
  Receipt Date: 20151202
  Transmission Date: 20160304
  Serious: Yes (Life-Threatening, Hospitalization)
  Sender: FDA-Public Use
  Company Number: PHHY2015GB078775

PATIENT

DRUGS (26)
  1. AZITHROMYCIN [Concomitant]
     Active Substance: AZITHROMYCIN ANHYDROUS
     Indication: PRODUCT USED FOR UNKNOWN INDICATION
     Route: 065
  2. CRISANTASPASE [Concomitant]
     Active Substance: ASPARAGINASE ERWINIA CHRYSANTHEMI
     Indication: CHEMOTHERAPY
     Dates: start: 20150501, end: 20150513
  3. METHOTREXATE [Concomitant]
     Active Substance: METHOTREXATE
     Indication: PRODUCT USED FOR UNKNOWN INDICATION
     Dosage: UNK
     Route: 037
     Dates: start: 20150121, end: 20150326
  4. TEICOPLANIN [Concomitant]
     Active Substance: TEICOPLANIN
     Indication: INFECTION
     Route: 065
  5. VANCOMYCIN [Suspect]
     Active Substance: VANCOMYCIN
     Dosage: 700 MG, QID
     Route: 042
  6. MERCAPTOPURINE. [Concomitant]
     Active Substance: MERCAPTOPURINE
     Indication: PRODUCT USED FOR UNKNOWN INDICATION
     Dosage: UNK
     Route: 048
     Dates: start: 20150304, end: 20150429
  7. ONDANSETRON [Concomitant]
     Active Substance: ONDANSETRON
     Indication: PRODUCT USED FOR UNKNOWN INDICATION
     Route: 065
  8. PARACETAMOL [Concomitant]
     Active Substance: ACETAMINOPHEN
     Indication: PRODUCT USED FOR UNKNOWN INDICATION
     Route: 065
  9. VINCRISTINE [Concomitant]
     Active Substance: VINCRISTINE
     Indication: CHEMOTHERAPY
     Route: 042
     Dates: start: 20150122, end: 20150508
  10. VANCOMYCIN [Suspect]
     Active Substance: VANCOMYCIN
     Indication: SEPSIS
     Dosage: 15 MG/KG, TID
     Route: 042
     Dates: start: 20150515
  11. CYTARABINE. [Concomitant]
     Active Substance: CYTARABINE
     Indication: PRODUCT USED FOR UNKNOWN INDICATION
     Dosage: UNK
     Route: 042
     Dates: start: 20150305, end: 20150427
  12. PEGASPARGASE [Concomitant]
     Active Substance: PEGASPARGASE
     Indication: CHEMOTHERAPY
     Dosage: ALLERGIC TO PEGASPARGASE - STOPPED
     Dates: start: 20150124, end: 20150319
  13. AMOXICILLIN. [Concomitant]
     Active Substance: AMOXICILLIN
     Indication: PRODUCT USED FOR UNKNOWN INDICATION
     Route: 065
  14. CYCLOPHOSPHAMIDE. [Concomitant]
     Active Substance: CYCLOPHOSPHAMIDE
     Indication: CHEMOTHERAPY
     Route: 042
     Dates: start: 20150305, end: 20150416
  15. PEGASPARGASE [Concomitant]
     Active Substance: PEGASPARGASE
     Indication: PRODUCT USED FOR UNKNOWN INDICATION
     Dosage: ALLERGIC TO PEGASPARGASE-STOPPED
     Route: 065
     Dates: start: 20150124, end: 20150319
  16. CHLORPHENAMINE [Concomitant]
     Active Substance: CHLORPHENIRAMINE MALEATE
     Indication: PRODUCT USED FOR UNKNOWN INDICATION
     Route: 065
  17. COTRIMOXAZOLE [Concomitant]
     Active Substance: SULFAMETHOXAZOLE\TRIMETHOPRIM
     Indication: PRODUCT USED FOR UNKNOWN INDICATION
     Dosage: UNK
     Route: 065
     Dates: start: 20150124
  18. CYTARABINE. [Concomitant]
     Active Substance: CYTARABINE
     Indication: CHEMOTHERAPY
     Route: 042
     Dates: start: 20150305, end: 20150427
  19. MERCAPTOPURINE. [Concomitant]
     Active Substance: MERCAPTOPURINE
     Indication: CHEMOTHERAPY
     Route: 048
     Dates: start: 20150304, end: 20150429
  20. METHOTREXATE [Concomitant]
     Active Substance: METHOTREXATE
     Indication: CHEMOTHERAPY
     Route: 037
     Dates: start: 20150121, end: 20150326
  21. VINCRISTINE [Concomitant]
     Active Substance: VINCRISTINE
     Indication: PRODUCT USED FOR UNKNOWN INDICATION
     Dosage: UNK
     Route: 042
     Dates: start: 20150122, end: 20150508
  22. VANCOMYCIN [Suspect]
     Active Substance: VANCOMYCIN
     Dosage: 840 MG, QID
     Route: 042
     Dates: start: 20150519, end: 20150521
  23. COTRIMOXAZOLE [Concomitant]
     Active Substance: SULFAMETHOXAZOLE\TRIMETHOPRIM
     Indication: ANTIFUNGAL PROPHYLAXIS
     Dosage: ONGOING
     Dates: start: 20150124
  24. CRISANTASPASE [Concomitant]
     Active Substance: ASPARAGINASE ERWINIA CHRYSANTHEMI
     Indication: PRODUCT USED FOR UNKNOWN INDICATION
     Dosage: UNK
     Route: 065
     Dates: start: 20150501, end: 20150513
  25. CYCLOPHOSPHAMIDE. [Concomitant]
     Active Substance: CYCLOPHOSPHAMIDE
     Indication: PRODUCT USED FOR UNKNOWN INDICATION
     Dosage: UNK
     Route: 042
     Dates: start: 20150305, end: 20150416
  26. PIPERACILLIN AND TAZOBACTAM [Concomitant]
     Active Substance: PIPERACILLIN SODIUM\TAZOBACTAM SODIUM
     Indication: PRODUCT USED FOR UNKNOWN INDICATION
     Route: 065

REACTIONS (1)
  - Acute kidney injury [Recovered/Resolved]

NARRATIVE: CASE EVENT DATE: 20150521
